FAERS Safety Report 5038493-1 (Version None)
Quarter: 2006Q2

REPORT INFORMATION
  Report Type: 
  Country: None (occurrence: None)
  Receive Date: 20060601
  Receipt Date: 20060313
  Transmission Date: 20061013
  Serious: No
  Sender: FDA-Public Use
  Company Number: 2006PV010214

PATIENT
  Age: 61 Year
  Sex: Female
  Weight: 72.1219 kg

DRUGS (4)
  1. BYETTA [Suspect]
     Indication: DIABETES MELLITUS NON-INSULIN-DEPENDENT
     Dosage: 5 MCG;BID;SC
     Route: 058
     Dates: start: 20060309
  2. NAPROSYN [Concomitant]
  3. RANITIDINE [Concomitant]
  4. METFORMIN [Concomitant]

REACTIONS (5)
  - CHILLS [None]
  - DIARRHOEA [None]
  - NAUSEA [None]
  - PILOERECTION [None]
  - SKIN BURNING SENSATION [None]
